FAERS Safety Report 9031580 (Version 2)
Quarter: 2013Q2

REPORT INFORMATION
  Report Type: Report from Study
  Country: CA (occurrence: CA)
  Receive Date: 20130124
  Receipt Date: 20130531
  Transmission Date: 20140414
  Serious: Yes (Other)
  Sender: FDA-Public Use
  Company Number: CA-ROCHE-1183213

PATIENT
  Age: 53 Year
  Sex: Female
  Weight: 90.7 kg

DRUGS (6)
  1. HERCEPTIN [Suspect]
     Indication: BREAST CANCER METASTATIC
     Route: 042
     Dates: start: 201104, end: 201106
  2. HERCEPTIN [Suspect]
     Route: 042
     Dates: start: 20120503, end: 201210
  3. PHENYLPROPANOLAMINE HCL [Concomitant]
  4. HYDROCHLOROTHIAZIDE [Concomitant]
  5. REACTINE (CANADA) [Concomitant]
  6. PACLITAXEL [Concomitant]
     Route: 065
     Dates: start: 20120503, end: 201210

REACTIONS (3)
  - Pulmonary embolism [Unknown]
  - Device related infection [Recovered/Resolved]
  - Malaise [Unknown]
